FAERS Safety Report 8490955-0 (Version None)
Quarter: 2012Q3

REPORT INFORMATION
  Report Type: 
  Country: None (occurrence: None)
  Receive Date: 20120706
  Receipt Date: 20120629
  Transmission Date: 20120928
  Serious: Yes (Hospitalization, Other)
  Sender: FDA-Public Use
  Company Number: US-BAYER-2012-064896

PATIENT
  Age: 34 Year
  Sex: Female

DRUGS (1)
  1. MIRENA [Suspect]
     Indication: CONTRACEPTION
     Dosage: 20 ?G/D, CONT
     Route: 015
     Dates: start: 20120611, end: 20120617

REACTIONS (15)
  - PYREXIA [None]
  - GENITAL HAEMORRHAGE [None]
  - DEVICE DISLOCATION [None]
  - ABDOMINAL PAIN LOWER [None]
  - VISION BLURRED [None]
  - SUPPRESSED LACTATION [None]
  - DYSURIA [None]
  - HYPERHIDROSIS [None]
  - URINARY TRACT INFECTION [None]
  - GRIP STRENGTH DECREASED [None]
  - HEADACHE [None]
  - CHILLS [None]
  - HYPOAESTHESIA [None]
  - BACK PAIN [None]
  - NAUSEA [None]
